FAERS Safety Report 7343640-2 (Version None)
Quarter: 2011Q1

REPORT INFORMATION
  Report Type: 
  Country: None (occurrence: None)
  Receive Date: 20110310
  Receipt Date: 20100825
  Transmission Date: 20110831
  Serious: No
  Sender: FDA-Public Use
  Company Number: A0877614A

PATIENT
  Age: 53 Year
  Sex: Male

DRUGS (1)
  1. NICORETTE (MINT) [Suspect]
     Dates: start: 20100822

REACTIONS (5)
  - GASTROINTESTINAL HYPOMOTILITY [None]
  - DYSPEPSIA [None]
  - CONSTIPATION [None]
  - GASTRIC DISORDER [None]
  - ACCIDENTAL EXPOSURE [None]
